FAERS Safety Report 5768338-3 (Version None)
Quarter: 2008Q2

REPORT INFORMATION
  Report Type: 
  Country: None (occurrence: None)
  Receive Date: 20080612
  Receipt Date: 20080408
  Transmission Date: 20081010
  Serious: No
  Sender: FDA-Public Use
  Company Number: US-ABBOTT-08P-163-0438059-00

PATIENT
  Sex: Male
  Weight: 92.162 kg

DRUGS (9)
  1. HUMIRA [Suspect]
     Indication: CROHN'S DISEASE
     Route: 058
     Dates: start: 20071001, end: 20071001
  2. HUMIRA [Suspect]
     Route: 058
     Dates: start: 20071001, end: 20071001
  3. HUMIRA [Suspect]
     Route: 058
     Dates: end: 20071214
  4. HUMIRA [Suspect]
     Route: 058
     Dates: start: 20071221, end: 20080207
  5. HUMIRA [Suspect]
     Route: 058
     Dates: start: 20080214
  6. LANSOPRAZOLE [Concomitant]
     Indication: GASTROOESOPHAGEAL REFLUX DISEASE
     Route: 048
  7. LANSOPRAZOLE [Concomitant]
     Indication: DYSPEPSIA
  8. METHOTREXATE [Concomitant]
     Indication: CROHN'S DISEASE
     Dosage: 2-2.5 MG TABS, THREE TIMES WEEKLY
     Route: 048
  9. FOLIC ACID [Concomitant]
     Indication: VITAMIN SUPPLEMENTATION
     Route: 048

REACTIONS (7)
  - ABDOMINAL PAIN [None]
  - COLITIS [None]
  - DIARRHOEA [None]
  - DRUG EFFECT DECREASED [None]
  - FAECAL INCONTINENCE [None]
  - FLATULENCE [None]
  - MALAISE [None]
